FAERS Safety Report 24117406 (Version 1)
Quarter: 2024Q3

REPORT INFORMATION
  Report Type: Spontaneous
  Country: GB (occurrence: GB)
  Receive Date: 20240722
  Receipt Date: 20240722
  Transmission Date: 20241016
  Serious: Yes (Other)
  Sender: ACCORD
  Company Number: None

PATIENT
  Age: 44 Year
  Sex: Male
  Weight: 142 kg

DRUGS (6)
  1. AMITRIPTYLINE [Suspect]
     Active Substance: AMITRIPTYLINE
     Indication: Insomnia
     Dosage: 100MG ON
     Dates: start: 20231206
  2. ABILIFY [Concomitant]
     Active Substance: ARIPIPRAZOLE
     Indication: Depression
     Dates: start: 20200119
  3. ACETAMINOPHEN\CODEINE PHOSPHATE [Concomitant]
     Active Substance: ACETAMINOPHEN\CODEINE PHOSPHATE
     Indication: Sciatica
     Dates: start: 20220824
  4. NEFOPAM [Concomitant]
     Active Substance: NEFOPAM
     Indication: Sciatica
     Dates: start: 20220824
  5. ROBAXIN [Concomitant]
     Active Substance: METHOCARBAMOL
     Indication: Sciatica
     Dates: start: 20230522
  6. PROPRANOLOL [Concomitant]
     Active Substance: PROPRANOLOL HYDROCHLORIDE
     Indication: Anxiety
     Dates: start: 20120306

REACTIONS (1)
  - Formication [Recovered/Resolved]

NARRATIVE: CASE EVENT DATE: 20240625
